FAERS Safety Report 7778133-1 (Version None)
Quarter: 2011Q3

REPORT INFORMATION
  Report Type: 
  Country: None (occurrence: None)
  Receive Date: 20110926
  Receipt Date: 20100708
  Transmission Date: 20111222
  Serious: No
  Sender: FDA-Public Use
  Company Number: US-MUTUAL PHARMACEUTICAL COMPANY, INC.-1-23056566

PATIENT
  Age: 46 Year
  Sex: Male

DRUGS (2)
  1. BACTRIM [Suspect]
     Route: 048
     Dates: start: 20030101
  2. UNK (MAY HAVE BEEN TAKING VITAMINS) [Concomitant]

REACTIONS (6)
  - SKIN EXFOLIATION [None]
  - PROCTALGIA [None]
  - ANAL PRURITUS [None]
  - DRUG HYPERSENSITIVITY [None]
  - ANORECTAL DISCOMFORT [None]
  - ANAL HAEMORRHAGE [None]
